FAERS Safety Report 5967681-2 (Version None)
Quarter: 2008Q4

REPORT INFORMATION
  Report Type: 
  Country: None (occurrence: None)
  Receive Date: 20081126
  Receipt Date: 20081121
  Transmission Date: 20090506
  Serious: Yes (Life-Threatening)
  Sender: FDA-Public Use
  Company Number: PHHY2008BR25363

PATIENT
  Sex: Female
  Weight: 59 kg

DRUGS (2)
  1. FORASEQ [Suspect]
     Indication: ASTHMA
     Dosage: 12/400 MCG BID
  2. FORASEQ [Suspect]
     Dosage: 12/400 MCG QD

REACTIONS (3)
  - APPARENT DEATH [None]
  - DRUG INEFFECTIVE [None]
  - DYSPNOEA [None]
